FAERS Safety Report 12256201 (Version 1)
Quarter: 2016Q2

REPORT INFORMATION
  Report Type: Spontaneous
  Country: US (occurrence: None)
  Receive Date: 20160411
  Receipt Date: 20160411
  Transmission Date: 20160815
  Serious: No
  Sender: FDA-Public Use
  Company Number: None

PATIENT
  Age: 39 Year
  Sex: Female
  Weight: 122 kg

DRUGS (1)
  1. ROBITUSSIN AC [Suspect]
     Active Substance: CODEINE PHOSPHATE\GUAIFENESIN
     Indication: COUGH
     Dates: start: 20160318, end: 20160319

REACTIONS (2)
  - Abdominal discomfort [None]
  - Pruritus [None]

NARRATIVE: CASE EVENT DATE: 20160319
